FAERS Safety Report 9207086 (Version 2)
Quarter: 2014Q1

REPORT INFORMATION
  Report Type: Spontaneous
  Country: US (occurrence: US)
  Receive Date: 20130403
  Receipt Date: 20140129
  Transmission Date: 20141002
  Serious: Yes (Hospitalization, Other)
  Sender: FDA-Public Use
  Company Number: US-BAYER-2013-039538

PATIENT
  Age: 47 Year
  Sex: Female

DRUGS (10)
  1. YASMIN [Suspect]
     Dosage: UNK
     Dates: start: 2006, end: 2011
  2. OCELLA [Suspect]
     Dosage: UNK
     Dates: start: 2006, end: 2011
  3. PSYLLIUM [Concomitant]
     Route: 048
  4. COLACE [Concomitant]
     Route: 048
  5. CELEXA [Concomitant]
     Route: 048
  6. FERROUS GLUCONATE [Concomitant]
     Route: 048
  7. SIMVASTATIN [Concomitant]
  8. SYNTHROID [Concomitant]
  9. MULTIVITAMIN [Concomitant]
  10. VITAMIN C [Concomitant]

REACTIONS (5)
  - Cholecystitis chronic [None]
  - Gallbladder disorder [None]
  - Injury [None]
  - Pain [None]
  - Emotional distress [None]
